FAERS Safety Report 7202456-8 (Version None)
Quarter: 2010Q4

REPORT INFORMATION
  Report Type: 
  Country: None (occurrence: None)
  Receive Date: 20101229
  Receipt Date: 20101221
  Transmission Date: 20110411
  Serious: Yes (Death, Life-Threatening, Hospitalization)
  Sender: FDA-Public Use
  Company Number: B0680215A

PATIENT
  Sex: Male

DRUGS (9)
  1. MELPHALAN [Suspect]
     Indication: MULTIPLE MYELOMA
     Dosage: 4MG PER DAY
     Route: 065
     Dates: start: 20091104
  2. THALIDOMIDE [Suspect]
     Indication: MULTIPLE MYELOMA
     Dosage: 200MG PER DAY
     Route: 048
     Dates: start: 20091104, end: 20101007
  3. PREDNISONE [Suspect]
     Indication: MULTIPLE MYELOMA
     Dosage: 135MG PER DAY
     Route: 065
     Dates: start: 20091104
  4. ZOMETA [Concomitant]
     Indication: PROPHYLAXIS
     Dosage: .1333MG MONTHLY
     Route: 042
  5. PREVISCAN [Concomitant]
     Indication: THROMBOSIS PROPHYLAXIS
     Dosage: 20MG PER DAY
     Route: 048
  6. PLAVIX [Concomitant]
     Indication: THROMBOSIS PROPHYLAXIS
     Dosage: 75MG PER DAY
     Route: 048
     Dates: start: 20100522, end: 20101017
  7. FORLAX [Concomitant]
     Indication: CONSTIPATION
     Route: 048
     Dates: start: 20100709, end: 20101011
  8. OXYCONTIN [Concomitant]
     Indication: BACK PAIN
     Dosage: 10MG PER DAY
     Route: 048
     Dates: start: 20100709, end: 20101011
  9. PRIMPERAN TAB [Concomitant]
     Indication: PROPHYLAXIS OF NAUSEA AND VOMITING
     Dosage: 30MG PER DAY
     Route: 048
     Dates: start: 20100709, end: 20101011

REACTIONS (9)
  - BONE PAIN [None]
  - DYSPNOEA [None]
  - EXTRAVASATION [None]
  - HYPOCAPNIA [None]
  - HYPOXIA [None]
  - LYMPHOPENIA [None]
  - PLEURAL EFFUSION [None]
  - PNEUMOCYSTIS JIROVECI PNEUMONIA [None]
  - THROMBOCYTOPENIA [None]
